FAERS Safety Report 6294746-0 (Version None)
Quarter: 2009Q3

REPORT INFORMATION
  Report Type: 
  Country: None (occurrence: None)
  Receive Date: 20090731
  Receipt Date: 20090731
  Transmission Date: 20100115
  Serious: No
  Sender: FDA-Public Use
  Company Number: None

PATIENT
  Age: 15 Year
  Sex: Male
  Weight: 54.4316 kg

DRUGS (1)
  1. ACCUTANE [Suspect]
     Indication: ACNE
     Dosage: 60 MG QD PO
     Route: 048
     Dates: start: 20090101, end: 20090630

REACTIONS (2)
  - PHOTOSENSITIVITY REACTION [None]
  - VISION BLURRED [None]
